FAERS Safety Report 18612647 (Version 3)
Quarter: 2021Q3

REPORT INFORMATION
  Report Type: Report from Study
  Country: CO (occurrence: CO)
  Receive Date: 20201214
  Receipt Date: 20210701
  Transmission Date: 20211014
  Serious: Yes (Other)
  Sender: FDA-Public Use
  Company Number: CO-INCYTE CORPORATION-2019IN001911

PATIENT

DRUGS (8)
  1. ASPIRETINA [Suspect]
     Active Substance: ASPIRIN
     Indication: CARDIOVASCULAR DISORDER
     Dosage: UNK, QD
     Route: 065
  2. HYDROXYUREA. [Suspect]
     Active Substance: HYDROXYUREA
     Indication: PRODUCT USED FOR UNKNOWN INDICATION
     Dosage: UNK
     Route: 065
  3. JAKAVI [Suspect]
     Active Substance: RUXOLITINIB
     Dosage: 40 MG, QD
     Route: 048
  4. JAKAVI [Suspect]
     Active Substance: RUXOLITINIB
     Indication: POLYCYTHAEMIA VERA
     Dosage: 20 MG, QD
     Route: 048
     Dates: start: 20190118
  5. JAKAVI [Suspect]
     Active Substance: RUXOLITINIB
     Dosage: 20 MG, Q12H
     Route: 048
  6. JAKAVI [Suspect]
     Active Substance: RUXOLITINIB
     Dosage: 20 MG, Q12H (2 YEARS AGO)
     Route: 048
  7. ENALAPRIL [Concomitant]
     Active Substance: ENALAPRIL
     Indication: HYPERTENSION
     Dosage: 20 MG, QD (4 YEARS AGO)
     Route: 048
  8. ASPIRIN [ACETYLSALICYLIC ACID] [Concomitant]
     Active Substance: ASPIRIN
     Indication: COAGULOPATHY
     Dosage: 100 MG, QD (10 YEARS AGO)
     Route: 048

REACTIONS (17)
  - Pain in extremity [Unknown]
  - Haemoglobin decreased [Unknown]
  - Arthralgia [Unknown]
  - Scar [Unknown]
  - Hypoacusis [Unknown]
  - Platelet count decreased [Unknown]
  - Malaise [Unknown]
  - Migraine [Recovered/Resolved]
  - Pain [Unknown]
  - Decreased appetite [Unknown]
  - Headache [Unknown]
  - Emotional disorder [Unknown]
  - Inappropriate schedule of product administration [Unknown]
  - Fear [Unknown]
  - Cardiovascular disorder [Unknown]
  - Thrombosis [Unknown]
  - Facial pain [Unknown]

NARRATIVE: CASE EVENT DATE: 20190208
